FAERS Safety Report 8885124 (Version 2)
Quarter: 2013Q1

REPORT INFORMATION
  Report Type: Spontaneous
  Country: US (occurrence: US)
  Receive Date: 20121105
  Receipt Date: 20130328
  Transmission Date: 20140127
  Serious: No
  Sender: FDA-Public Use
  Company Number: US-BIOGENIDEC-2012BI048885

PATIENT
  Age: 31 Year
  Sex: Female

DRUGS (2)
  1. TYSABRI [Suspect]
     Indication: MULTIPLE SCLEROSIS
     Route: 042
     Dates: start: 20111117, end: 20111117
  2. TYSABRI [Suspect]
     Indication: MULTIPLE SCLEROSIS
     Route: 042
     Dates: start: 20121026

REACTIONS (8)
  - Throat tightness [Unknown]
  - Throat irritation [Unknown]
  - Feeling cold [Unknown]
  - Infusion site pruritus [Unknown]
  - Chest pain [Unknown]
  - Nausea [Unknown]
  - Infusion site swelling [Unknown]
  - Chest discomfort [Recovered/Resolved]
